FAERS Safety Report 19945775 (Version 1)
Quarter: 2021Q4

REPORT INFORMATION
  Report Type: Spontaneous
  Country: US (occurrence: US)
  Receive Date: 20211012
  Receipt Date: 20211012
  Transmission Date: 20220303
  Serious: Yes (Other)
  Sender: FDA-Public Use
  Company Number: US-PFIZER INC-202101288022

PATIENT
  Age: 49 Year
  Sex: Male

DRUGS (1)
  1. LINEZOLID [Suspect]
     Active Substance: LINEZOLID
     Dosage: ONE TABLET (600MG) BY MOUTH EVERY 12 HOURS
     Route: 048

REACTIONS (1)
  - Pneumonia [Unknown]
